FAERS Safety Report 8430615-5 (Version None)
Quarter: 2012Q2

REPORT INFORMATION
  Report Type: 
  Country: None (occurrence: None)
  Receive Date: 20120612
  Receipt Date: 20120529
  Transmission Date: 20120825
  Serious: Yes (Hospitalization)
  Sender: FDA-Public Use
  Company Number: NL-MEDIMMUNE-MEDI-0015054

PATIENT
  Age: 8 Month
  Sex: Male
  Weight: 7.1 kg

DRUGS (10)
  1. LEVOTHYROXINE SODIUM [Concomitant]
     Indication: HYPOPITUITARISM
     Dosage: 0.025, 1 IN 1 DAY
  2. HYDROCORTISONE [Concomitant]
  3. BACTRIM [Concomitant]
     Indication: PROPHYLAXIS
  4. SYNAGIS [Suspect]
     Route: 030
     Dates: start: 20120221, end: 20120401
  5. DOMPERIDONE [Concomitant]
  6. SYNAGIS [Suspect]
     Indication: BRONCHOPULMONARY DYSPLASIA
     Route: 030
     Dates: start: 20111028, end: 20111028
  7. SYNAGIS [Suspect]
     Route: 030
     Dates: start: 20120119, end: 20120119
  8. OMEPRAZOLE [Concomitant]
     Indication: GASTROOESOPHAGEAL REFLUX DISEASE
  9. TRIMETHOPRIM SULFOMETHOXAZOL [Concomitant]
  10. ESOMEPRAZOLE [Concomitant]

REACTIONS (8)
  - VIRAL INFECTION [None]
  - VIRAL TEST POSITIVE [None]
  - RESPIRATORY FAILURE [None]
  - DYSPNOEA [None]
  - VOMITING [None]
  - DIARRHOEA [None]
  - COUGH [None]
  - PYREXIA [None]
